FAERS Safety Report 15530369 (Version 2)
Quarter: 2018Q4

REPORT INFORMATION
  Report Type: Report from Study
  Country: US (occurrence: US)
  Receive Date: 20181018
  Receipt Date: 20181031
  Transmission Date: 20190205
  Serious: Yes (Death, Hospitalization, Other)
  Sender: FDA-Public Use
  Company Number: US-EXELIXIS-CABO-18016446

PATIENT
  Age: 44 Year
  Sex: Male

DRUGS (20)
  1. LEVETIRACETAM. [Concomitant]
     Active Substance: LEVETIRACETAM
  2. LOMUSTINE. [Concomitant]
     Active Substance: LOMUSTINE
  3. MULTIVITAMINS, OTHER COMBINATIONS [Concomitant]
  4. GLEXAR [Concomitant]
  5. INSOMNIA [Concomitant]
  6. RITALIN [Concomitant]
     Active Substance: METHYLPHENIDATE HYDROCHLORIDE
  7. OXYCODONE [Concomitant]
     Active Substance: OXYCODONE
  8. ELIQUIS [Concomitant]
     Active Substance: APIXABAN
  9. MAGNESIUM [Concomitant]
     Active Substance: MAGNESIUM
  10. CABOMETYX [Suspect]
     Active Substance: CABOZANTINIB S-MALATE
     Indication: BRAIN NEOPLASM MALIGNANT
     Dosage: 60 MG, QD
     Route: 048
     Dates: start: 20180214, end: 20180330
  11. ZOFRAN [Concomitant]
     Active Substance: ONDANSETRON HYDROCHLORIDE
  12. DEXAMETHASONE. [Concomitant]
     Active Substance: DEXAMETHASONE
  13. CLONAZEPAM. [Concomitant]
     Active Substance: CLONAZEPAM
  14. METHYLPHENIDATE. [Concomitant]
     Active Substance: METHYLPHENIDATE
  15. HYDROCORTISONE. [Concomitant]
     Active Substance: HYDROCORTISONE
  16. CELEXA [Concomitant]
     Active Substance: CITALOPRAM HYDROBROMIDE
  17. FAMOTIDINE. [Concomitant]
     Active Substance: FAMOTIDINE
  18. CABOMETYX [Suspect]
     Active Substance: CABOZANTINIB S-MALATE
     Dosage: 60 MG, QD
     Route: 048
     Dates: start: 20180607, end: 201807
  19. FLUCONAZOLE. [Concomitant]
     Active Substance: FLUCONAZOLE
  20. KEPPRA [Concomitant]
     Active Substance: LEVETIRACETAM

REACTIONS (13)
  - Cerebrovascular accident [Unknown]
  - Rash [Unknown]
  - Acute respiratory failure [Fatal]
  - Septic shock [Fatal]
  - Post procedural infection [Unknown]
  - Rectal ulcer [Unknown]
  - Pulmonary embolism [Unknown]
  - Glioblastoma multiforme [Fatal]
  - Off label use [Unknown]
  - Pulmonary haemorrhage [Unknown]
  - Pneumothorax [Unknown]
  - Deep vein thrombosis [Unknown]
  - Constipation [Unknown]

NARRATIVE: CASE EVENT DATE: 2018
